FAERS Safety Report 24858054 (Version 2)
Quarter: 2025Q1

REPORT INFORMATION
  Report Type: Spontaneous
  Country: US (occurrence: US)
  Receive Date: 20250117
  Receipt Date: 20250324
  Transmission Date: 20250409
  Serious: No
  Sender: SANOFI AVENTIS
  Company Number: US-SA-2025SA014716

PATIENT
  Age: 5 Year
  Sex: Male

DRUGS (3)
  1. DUPIXENT [Suspect]
     Active Substance: DUPILUMAB
     Indication: Dermatitis atopic
     Dosage: 200 MG, QOW
     Route: 058
     Dates: start: 202405
  2. DUPIXENT [Suspect]
     Active Substance: DUPILUMAB
     Indication: Seborrhoeic dermatitis
  3. DUPIXENT [Suspect]
     Active Substance: DUPILUMAB
     Indication: Eosinophilic oesophagitis

REACTIONS (3)
  - Influenza [Unknown]
  - Product use in unapproved indication [Unknown]
  - Inappropriate schedule of product administration [Unknown]

NARRATIVE: CASE EVENT DATE: 20240501
